FAERS Safety Report 7498283-7 (Version None)
Quarter: 2011Q2

REPORT INFORMATION
  Report Type: 
  Country: None (occurrence: None)
  Receive Date: 20110524
  Receipt Date: 20110518
  Transmission Date: 20111010
  Serious: No
  Sender: FDA-Public Use
  Company Number: US-BIOGENIDEC-2011BI018833

PATIENT
  Sex: Male

DRUGS (1)
  1. TYSABRI [Suspect]
     Indication: MULTIPLE SCLEROSIS
     Route: 042
     Dates: start: 20090811

REACTIONS (6)
  - MULTIPLE SCLEROSIS RELAPSE [None]
  - RHEUMATOID ARTHRITIS [None]
  - ARTHRALGIA [None]
  - MOBILITY DECREASED [None]
  - PAIN IN EXTREMITY [None]
  - GAIT DISTURBANCE [None]
